FAERS Safety Report 7126913-8 (Version None)
Quarter: 2010Q4

REPORT INFORMATION
  Report Type: 
  Country: None (occurrence: None)
  Receive Date: 20101129
  Receipt Date: 20091222
  Transmission Date: 20110411
  Serious: No
  Sender: FDA-Public Use
  Company Number: US-PFIZER INC-2009314850

PATIENT
  Sex: Male
  Weight: 99.8 kg

DRUGS (4)
  1. VIAGRA [Suspect]
     Indication: ERECTILE DYSFUNCTION
     Dosage: 50 MG, UNK
  2. TOPROL-XL [Concomitant]
     Dosage: 200 MG, 1X/DAY
  3. CELEBREX [Concomitant]
     Dosage: 200 MG, 1X/DAY
  4. MOEXIPRIL [Concomitant]
     Dosage: 50 MG, 1X/DAY

REACTIONS (1)
  - DRUG INEFFECTIVE [None]
